FAERS Safety Report 5313210-6 (Version None)
Quarter: 2007Q2

REPORT INFORMATION
  Report Type: 
  Country: None (occurrence: None)
  Receive Date: 20070430
  Receipt Date: 20070418
  Transmission Date: 20071010
  Serious: Yes (Hospitalization, Other)
  Sender: FDA-Public Use
  Company Number: US-AMGEN-US220389

PATIENT
  Sex: Female

DRUGS (3)
  1. NEULASTA [Suspect]
     Indication: CHEMOTHERAPY
     Route: 065
     Dates: end: 20070306
  2. GEMCITABINE HCL [Concomitant]
     Route: 065
  3. CARBOPLATIN [Concomitant]
     Route: 065

REACTIONS (2)
  - NEUTROPHIL COUNT ABNORMAL [None]
  - PNEUMONIA [None]
